FAERS Safety Report 20675587 (Version 1)
Quarter: 2022Q2

REPORT INFORMATION
  Report Type: Spontaneous
  Country: US (occurrence: US)
  Receive Date: 20220405
  Receipt Date: 20220405
  Transmission Date: 20220721
  Serious: No
  Sender: FDA-Public Use
  Company Number: US-BRISTOL-MYERS SQUIBB COMPANY-2022-010739

PATIENT
  Sex: Female

DRUGS (9)
  1. ELIQUIS [Suspect]
     Active Substance: APIXABAN
     Indication: Cerebrovascular accident prophylaxis
     Route: 048
     Dates: start: 202011
  2. METOPROLOL [Concomitant]
     Active Substance: METOPROLOL
     Indication: Product used for unknown indication
  3. bupropion SR antidepressant [Concomitant]
     Indication: Product used for unknown indication
     Dosage: 150 MG 2 PILLS ONCE A DAY TOTAL 300 MG DAILY.
  4. METFORMIN [Concomitant]
     Active Substance: METFORMIN HYDROCHLORIDE
     Indication: Product used for unknown indication
     Dosage: 500 MG TABLET TWO TABLETS A DAY FOR 1000 MG.
  5. HYDROCHLOROTHIAZIDE [Concomitant]
     Active Substance: HYDROCHLOROTHIAZIDE
     Indication: Product used for unknown indication
  6. WILD ALASKAN SALMON OIL [Concomitant]
     Indication: Product used for unknown indication
  7. COQ [Concomitant]
     Indication: Product used for unknown indication
  8. MAGNESIUM MALATE [Concomitant]
     Active Substance: MAGNESIUM MALATE
     Indication: Product used for unknown indication
     Dosage: 1700 MG DAILY PRESCRIBED AS 6 CAPSULES ONLY TAKE 4 CAPSULES
  9. Vitamin C with rose hip [Concomitant]
     Indication: Product used for unknown indication

REACTIONS (1)
  - Back disorder [Unknown]
